FAERS Safety Report 7384647-9 (Version None)
Quarter: 2011Q1

REPORT INFORMATION
  Report Type: 
  Country: None (occurrence: None)
  Receive Date: 20110330
  Receipt Date: 20110328
  Transmission Date: 20110831
  Serious: Yes (Other)
  Sender: FDA-Public Use
  Company Number: GB-PFIZER INC-2010152955

PATIENT
  Age: 75 Year
  Sex: Male

DRUGS (10)
  1. ACETYLSALICYLIC ACID [Concomitant]
  2. PARACETAMOL [Concomitant]
  3. SIMVASTATIN [Concomitant]
     Indication: BLOOD CHOLESTEROL INCREASED
     Dosage: 40 MG, UNK
     Route: 048
     Dates: start: 20041101
  4. MIRTAZAPINE [Concomitant]
     Indication: DEPRESSION
     Dosage: 45 MG, UNK
     Route: 048
     Dates: start: 20030301
  5. LYRICA [Suspect]
     Dosage: 150 MG, 2X/DAY
     Route: 048
     Dates: start: 20100923, end: 20101108
  6. LEVOTHYROXINE [Concomitant]
     Indication: HYPOTHYROIDISM
     Dosage: 50 UG, UNK
     Route: 048
     Dates: start: 20080101
  7. LORAZEPAM [Concomitant]
     Dosage: UNK OCCASIONAL USE
  8. LYRICA [Suspect]
     Indication: ANXIETY
     Dosage: UNK
     Dates: start: 20100722, end: 20100922
  9. LITHIUM CARBONATE [Concomitant]
     Indication: AFFECTIVE DISORDER
     Dosage: 600 MG, UNK
     Route: 048
     Dates: start: 20041201
  10. MOVIPREP [Concomitant]

REACTIONS (7)
  - URINARY TRACT INFECTION [None]
  - URINARY RETENTION [None]
  - ATRIAL CONDUCTION TIME PROLONGATION [None]
  - HEART RATE DECREASED [None]
  - ENURESIS [None]
  - BRADYCARDIA [None]
  - URINARY INCONTINENCE [None]
